FAERS Safety Report 25024747 (Version 1)
Quarter: 2025Q1

REPORT INFORMATION
  Report Type: Spontaneous
  Country: CN (occurrence: CN)
  Receive Date: 20250228
  Receipt Date: 20250228
  Transmission Date: 20250409
  Serious: Yes (Other)
  Sender: ELI LILLY AND COMPANY
  Company Number: CN-ELI_LILLY_AND_COMPANY-CN202502012916

PATIENT
  Age: 67 Year
  Sex: Female

DRUGS (9)
  1. ABEMACICLIB [Interacting]
     Active Substance: ABEMACICLIB
     Indication: Breast cancer
     Dosage: 150 MG, BID
     Route: 048
     Dates: start: 202207
  2. RIVAROXABAN [Interacting]
     Active Substance: RIVAROXABAN
     Indication: Deep vein thrombosis
     Dosage: 15 MG, BID
     Route: 065
     Dates: start: 202206
  3. RIVAROXABAN [Interacting]
     Active Substance: RIVAROXABAN
     Dosage: 20 MG, DAILY
     Route: 065
     Dates: start: 202306
  4. RIVAROXABAN [Interacting]
     Active Substance: RIVAROXABAN
     Dosage: 10 MG, DAILY
     Route: 065
     Dates: start: 202306
  5. RIVAROXABAN [Interacting]
     Active Substance: RIVAROXABAN
     Dosage: 20 MG, DAILY
     Route: 065
     Dates: start: 202309
  6. RIVAROXABAN [Interacting]
     Active Substance: RIVAROXABAN
     Dosage: 15 MG, DAILY
     Route: 065
     Dates: start: 202309
  7. LETROZOLE [Concomitant]
     Active Substance: LETROZOLE
     Indication: Breast cancer
     Dosage: 2.5 MG, DAILY
     Route: 065
     Dates: start: 202207
  8. FENOFIBRATE [Concomitant]
     Active Substance: FENOFIBRATE
     Indication: Product used for unknown indication
     Route: 065
  9. PROPAFENONE [Concomitant]
     Active Substance: PROPAFENONE
     Indication: Product used for unknown indication
     Route: 065

REACTIONS (6)
  - Sjogren^s syndrome [Unknown]
  - Pulmonary embolism [Unknown]
  - Conjunctival haemorrhage [Unknown]
  - Coagulopathy [Unknown]
  - Gingival bleeding [Unknown]
  - Drug interaction [Unknown]

NARRATIVE: CASE EVENT DATE: 20230601
